FAERS Safety Report 13085752 (Version 5)
Quarter: 2018Q1

REPORT INFORMATION
  Report Type: Report from Study
  Country: FI (occurrence: FI)
  Receive Date: 20170104
  Receipt Date: 20180131
  Transmission Date: 20180508
  Serious: Yes (Hospitalization, Other)
  Sender: FDA-Public Use
  Company Number: FI-MYLANLABS-2017M1000612

PATIENT
  Age: 46 Year
  Sex: Female

DRUGS (8)
  1. LEPONEX [Suspect]
     Active Substance: CLOZAPINE
     Dosage: 800 MG, QD
     Route: 048
     Dates: start: 20161212, end: 20170105
  2. OLANZAPIN ORION [Concomitant]
     Dosage: UNK
     Route: 048
     Dates: start: 201608, end: 20170101
  3. ORFIRIL DESITIN [Concomitant]
     Active Substance: VALPROATE SODIUM
     Dosage: UNK, QD
     Route: 048
     Dates: start: 201608, end: 20161226
  4. OLANZAPIN ORION [Concomitant]
     Indication: SCHIZOPHRENIA
     Dosage: 25 MG, QD
     Route: 048
     Dates: start: 20160923, end: 2016
  5. LEPONEX [Suspect]
     Active Substance: CLOZAPINE
     Dosage: UNK
     Dates: start: 201606
  6. LAMICTAL [Concomitant]
     Active Substance: LAMOTRIGINE
     Indication: ADJUVANT THERAPY
     Dosage: UNK UNK, QD
     Route: 048
     Dates: start: 20161223, end: 20170105
  7. ORFIRIL DESITIN [Concomitant]
     Active Substance: VALPROATE SODIUM
     Indication: ADJUVANT THERAPY
     Dosage: UNK
     Dates: end: 20161223
  8. LEPONEX [Suspect]
     Active Substance: CLOZAPINE
     Indication: SCHIZOPHRENIA
     Dosage: 700 MG, QD
     Route: 048
     Dates: end: 201510

REACTIONS (12)
  - Neutropenia [Not Recovered/Not Resolved]
  - Delusion [Unknown]
  - Decreased appetite [Unknown]
  - Red blood cell count decreased [Unknown]
  - Thrombocytopenia [Not Recovered/Not Resolved]
  - Mean cell volume decreased [Unknown]
  - Living in residential institution [Unknown]
  - Condition aggravated [Unknown]
  - Eating disorder [Unknown]
  - Abnormal behaviour [Unknown]
  - Therapy cessation [Unknown]
  - Leukopenia [Unknown]

NARRATIVE: CASE EVENT DATE: 201510
